FAERS Safety Report 4893107-6 (Version None)
Quarter: 2005Q4

REPORT INFORMATION
  Report Type: 
  Country: None (occurrence: None)
  Receive Date: 20051223
  Receipt Date: 20050916
  Transmission Date: 20060501
  Serious: Yes (Hospitalization)
  Sender: FDA-Public Use
  Company Number: 217855

PATIENT
  Age: 62 Year
  Sex: Female

DRUGS (3)
  1. AVASTIN [Suspect]
     Indication: COLON CANCER
     Dosage: 500 MG, Q2W, INTRAVENOUS
     Route: 042
     Dates: start: 20050913, end: 20050913
  2. XELODA [Suspect]
     Indication: COLON CANCER
     Dates: start: 20050913
  3. ELOXATIN [Suspect]
     Indication: COLON CANCER
     Dates: start: 20050913

REACTIONS (1)
  - PULMONARY HAEMORRHAGE [None]
